FAERS Safety Report 14076472 (Version 2)
Quarter: 2017Q4

REPORT INFORMATION
  Report Type: Spontaneous
  Country: US (occurrence: US)
  Receive Date: 20171011
  Receipt Date: 20171024
  Transmission Date: 20180321
  Serious: Yes (Death)
  Sender: FDA-Public Use
  Company Number: US-FRESENIUS MEDICAL CARE RENAL THERAPIES GROUP-FMC-1710-001213

PATIENT
  Age: 51 Year
  Weight: 52 kg

DRUGS (9)
  1. DELFLEX WITH DEXTROSE 2.5% LOW MAGNESIUM LOW CALCIUM [Suspect]
     Active Substance: CALCIUM CHLORIDE\DEXTROSE\MAGNESIUM CHLORIDE\SODIUM CHLORIDE\SODIUM LACTATE
     Indication: END STAGE RENAL DISEASE
     Dosage: 7 DAYS A WEEK 6 HOURS A DAY FOR 3 MONTHS
     Route: 033
  2. HUMULIN N [Concomitant]
     Active Substance: INSULIN HUMAN
  3. RENAPLEX [Concomitant]
  4. CALCITRAL [Concomitant]
  5. GENTAMICIN. [Concomitant]
     Active Substance: GENTAMICIN
  6. LOSARTAN. [Concomitant]
     Active Substance: LOSARTAN
  7. HUMULIN R [Concomitant]
     Active Substance: INSULIN HUMAN
  8. NIFEDIPINE. [Concomitant]
     Active Substance: NIFEDIPINE
  9. TOPROL XL [Concomitant]
     Active Substance: METOPROLOL SUCCINATE

REACTIONS (2)
  - Cardiac arrest [Fatal]
  - Treatment noncompliance [Unknown]

NARRATIVE: CASE EVENT DATE: 20171005
